FAERS Safety Report 17764039 (Version 3)
Quarter: 2025Q2

REPORT INFORMATION
  Report Type: Spontaneous
  Country: FR (occurrence: FR)
  Receive Date: 20200511
  Receipt Date: 20250402
  Transmission Date: 20250716
  Serious: Yes (Hospitalization, Other)
  Sender: AUROBINDO
  Company Number: FR-MLMSERVICE-20200427-2277369-1

PATIENT
  Age: 25 Year
  Sex: Male

DRUGS (3)
  1. LEVOFLOXACIN [Suspect]
     Active Substance: LEVOFLOXACIN
     Indication: Cerebrospinal fluid leakage
     Dosage: 750 MILLIGRAM, ONCE A DAY
     Route: 048
  2. OXYBUTYNIN [Concomitant]
     Active Substance: OXYBUTYNIN
     Indication: Cerebrospinal fluid leakage
     Route: 065
  3. HYDROXYZINE [Concomitant]
     Active Substance: HYDROXYZINE HYDROCHLORIDE
     Indication: Cerebrospinal fluid leakage
     Route: 065

REACTIONS (3)
  - Agitation [Recovered/Resolved]
  - Muscle contractions involuntary [Recovering/Resolving]
  - Toxicity to various agents [Recovering/Resolving]
